FAERS Safety Report 6652865-0 (Version None)
Quarter: 2010Q1

REPORT INFORMATION
  Report Type: 
  Country: None (occurrence: None)
  Receive Date: 20100326
  Receipt Date: 20100319
  Transmission Date: 20100710
  Serious: Yes (Other)
  Sender: FDA-Public Use
  Company Number: IE-ASTRAZENECA-2010SE12184

PATIENT
  Age: 3 Year
  Sex: Male

DRUGS (6)
  1. LOSEC MUPS [Suspect]
     Indication: EOSINOPHILIC OESOPHAGITIS
     Route: 048
     Dates: start: 20100212, end: 20100226
  2. VENTOLIN [Concomitant]
     Route: 055
  3. SINGULAIR PEDIATRIC [Concomitant]
  4. FLIXOTIDE EVOHALER [Concomitant]
     Route: 055
  5. NEOCLARITYN [Concomitant]
  6. AVAMYS [Concomitant]

REACTIONS (4)
  - EYE DISORDER [None]
  - LETHARGY [None]
  - SLEEP DISORDER [None]
  - SOMNOLENCE [None]
